FAERS Safety Report 9520122 (Version 2)
Quarter: 2013Q3

REPORT INFORMATION
  Report Type: Spontaneous
  Country: CH (occurrence: CH)
  Receive Date: 20130912
  Receipt Date: 20130927
  Transmission Date: 20140515
  Serious: Yes (Life-Threatening, Hospitalization)
  Sender: FDA-Public Use
  Company Number: CH-PFIZER INC-2013261980

PATIENT
  Age: 56 Year
  Sex: Male

DRUGS (8)
  1. INSPRA [Suspect]
     Dosage: 25 MG, 1X/DAY
     Route: 048
     Dates: start: 20130611, end: 20130823
  2. ZESTRIL [Interacting]
     Dosage: 5 MG, 1X/DAY
     Route: 048
  3. ATORVASTATIN [Concomitant]
     Dosage: 40 MG, 1X/DAY
     Route: 048
  4. ASPIRIN CARDIO [Concomitant]
     Dosage: 100 MG, 1X/DAY
     Route: 048
  5. PLAVIX [Concomitant]
     Dosage: 75 MG, 1X/DAY
     Route: 048
  6. CONCOR [Concomitant]
     Dosage: 5 MG, 1X/DAY
     Route: 048
  7. LANTUS [Concomitant]
     Dosage: 100 IU, FREQUENCY UNKNOWN
     Route: 058
  8. NOVORAPID [Concomitant]
     Route: 058

REACTIONS (3)
  - Drug interaction [Not Recovered/Not Resolved]
  - Hyperkalaemia [Not Recovered/Not Resolved]
  - Metabolic acidosis [Not Recovered/Not Resolved]
